FAERS Safety Report 9934580 (Version 1)
Quarter: 2014Q1

REPORT INFORMATION
  Report Type: Spontaneous
  Country: US (occurrence: US)
  Receive Date: 20140228
  Receipt Date: 20140228
  Transmission Date: 20141002
  Serious: No
  Sender: FDA-Public Use
  Company Number: US-BAYER-2014-031062

PATIENT
  Age: 60 Year
  Sex: Female

DRUGS (5)
  1. CLIMARA [Suspect]
     Indication: MENOPAUSAL SYMPTOMS
     Dosage: 0.05 MG, QD
     Route: 062
     Dates: start: 2013
  2. LAMICTAL [Concomitant]
     Indication: ANXIETY
     Dosage: TWO AND A HALF 2MG QD
     Route: 048
     Dates: start: 2004
  3. LAMICTAL [Concomitant]
     Indication: DEPRESSION
  4. EFFEXOR XR [Concomitant]
     Indication: ANXIETY
     Dosage: ONE 375MG TABLET QD
     Route: 048
     Dates: start: 2004
  5. EFFEXOR XR [Concomitant]
     Indication: DEPRESSION

REACTIONS (1)
  - Alopecia [Not Recovered/Not Resolved]
